FAERS Safety Report 6917169-7 (Version None)
Quarter: 2010Q3

REPORT INFORMATION
  Report Type: 
  Country: None (occurrence: None)
  Receive Date: 20100721
  Receipt Date: 20100325
  Transmission Date: 20110219
  Serious: Yes (Hospitalization)
  Sender: FDA-Public Use
  Company Number: 2010AL000069

PATIENT
  Sex: Female

DRUGS (3)
  1. FOLOTYN [Suspect]
     Indication: PERIPHERAL T-CELL LYMPHOMA UNSPECIFIED
  2. CON MEDS =UNKNOWN [Concomitant]
  3. PREV MEDS =UNKNOWN [Concomitant]

REACTIONS (1)
  - MUCOSAL INFLAMMATION [None]
